FAERS Safety Report 4334893-3 (Version None)
Quarter: 2004Q2

REPORT INFORMATION
  Report Type: 
  Country: None (occurrence: None)
  Receive Date: 20040405
  Receipt Date: 20040324
  Transmission Date: 20050107
  Serious: Yes (Hospitalization)
  Sender: FDA-Public Use
  Company Number: 2004205537FR

PATIENT
  Age: 38 Year
  Sex: Female
  Weight: 51 kg

DRUGS (1)
  1. CELEBREX [Suspect]
     Indication: SCIATICA
     Dosage: 1 DF, QD, ORAL
     Route: 048
     Dates: start: 20030819, end: 20030821

REACTIONS (1)
  - COLITIS ULCERATIVE [None]
